FAERS Safety Report 8212957-1 (Version None)
Quarter: 2012Q1

REPORT INFORMATION
  Report Type: 
  Country: None (occurrence: None)
  Receive Date: 20120315
  Receipt Date: 20120313
  Transmission Date: 20120608
  Serious: Yes (Other)
  Sender: FDA-Public Use
  Company Number: US-PFIZER INC-2012066579

PATIENT
  Sex: Female
  Weight: 54.4 kg

DRUGS (6)
  1. PROZAC [Concomitant]
     Indication: DEPRESSION
     Dosage: 5 MG, DAILY
  2. FISH OIL [Concomitant]
     Dosage: UNK
  3. VITAMIN B-12 [Concomitant]
     Dosage: UNK
  4. FLECTOR [Suspect]
     Indication: MUSCLE SPASMS
     Dosage: UNK
     Route: 061
  5. MULTI-VITAMINS [Concomitant]
     Dosage: UNK
  6. SKELAXIN [Concomitant]
     Indication: MUSCLE RELAXANT THERAPY
     Dosage: UNK

REACTIONS (1)
  - COLON CANCER [None]
